FAERS Safety Report 4475675-1 (Version None)
Quarter: 2004Q3

REPORT INFORMATION
  Report Type: 
  Country: None (occurrence: None)
  Receive Date: 20040923
  Receipt Date: 20040715
  Transmission Date: 20050211
  Serious: No
  Sender: FDA-Public Use
  Company Number: USA040772782

PATIENT
  Age: 75 Year
  Sex: Female

DRUGS (2)
  1. FORTEO [Suspect]
     Indication: OSTEOPOROSIS
     Dates: start: 20031101
  2. SYNTHROID [Concomitant]

REACTIONS (5)
  - BRONCHITIS [None]
  - COUGH [None]
  - DIZZINESS [None]
  - HOARSENESS [None]
  - PHARYNGOLARYNGEAL PAIN [None]
